FAERS Safety Report 4821686-3 (Version None)
Quarter: 2005Q4

REPORT INFORMATION
  Report Type: 
  Country: None (occurrence: None)
  Receive Date: 20051107
  Receipt Date: 20050707
  Transmission Date: 20060501
  Serious: Yes (Hospitalization, Other)
  Sender: FDA-Public Use
  Company Number: US-MERCK-0507USA01268

PATIENT
  Age: 59 Year
  Sex: Female
  Weight: 70 kg

DRUGS (12)
  1. VIOXX [Suspect]
     Indication: ARTHRITIS
     Route: 048
     Dates: start: 20001208, end: 20040928
  2. VIOXX [Suspect]
     Indication: FIBROMYALGIA
     Route: 048
     Dates: start: 20001208, end: 20040928
  3. PRILOSEC [Concomitant]
     Route: 065
     Dates: end: 20000225
  4. PRILOSEC [Concomitant]
     Route: 065
     Dates: start: 20020813
  5. PROZAC [Concomitant]
     Route: 065
     Dates: end: 20040614
  6. PROZAC [Concomitant]
     Route: 065
     Dates: start: 20040614, end: 20050201
  7. PRAVACHOL [Concomitant]
     Route: 065
     Dates: start: 20020601, end: 20020901
  8. PRAVACHOL [Concomitant]
     Route: 065
     Dates: start: 20020315, end: 20020612
  9. PRAVACHOL [Concomitant]
     Route: 065
     Dates: start: 20010801, end: 20020315
  10. ESTRACE [Concomitant]
     Route: 065
     Dates: end: 20050101
  11. LIPITOR [Concomitant]
     Route: 065
     Dates: start: 20020901
  12. LIPITOR [Concomitant]
     Route: 065
     Dates: start: 20050201

REACTIONS (15)
  - BURSITIS [None]
  - CAROTID ARTERY STENOSIS [None]
  - CARPAL TUNNEL SYNDROME [None]
  - CEREBROVASCULAR ACCIDENT [None]
  - CEREBROVASCULAR DISORDER [None]
  - HYPERTENSION [None]
  - INFLUENZA [None]
  - NEURITIS [None]
  - NEUROPATHY [None]
  - OSTEOARTHRITIS [None]
  - RADIUS FRACTURE [None]
  - RESPIRATORY TRACT INFECTION [None]
  - SINUSITIS [None]
  - TENOSYNOVITIS STENOSANS [None]
  - VAGINAL INFECTION [None]
